FAERS Safety Report 5978809-2 (Version None)
Quarter: 2008Q4

REPORT INFORMATION
  Report Type: 
  Country: None (occurrence: None)
  Receive Date: 20081204
  Receipt Date: 20081126
  Transmission Date: 20090506
  Serious: Yes (Other)
  Sender: FDA-Public Use
  Company Number: PHHY2008JP26327

PATIENT
  Age: 77 Year
  Sex: Female

DRUGS (1)
  1. ZADITEN [Suspect]
     Dosage: 4 MG, BID
     Route: 048
     Dates: start: 20081001

REACTIONS (2)
  - ARRHYTHMIA [None]
  - BRADYCARDIA [None]
